FAERS Safety Report 5124595-8 (Version None)
Quarter: 2006Q4

REPORT INFORMATION
  Report Type: 
  Country: None (occurrence: None)
  Receive Date: 20061011
  Receipt Date: 20060928
  Transmission Date: 20070319
  Serious: Yes (Hospitalization, Disabling)
  Sender: FDA-Public Use
  Company Number: PHBS2006MX15327

PATIENT
  Age: 82 Year
  Sex: Female

DRUGS (2)
  1. STALEVO 100 [Suspect]
     Indication: PARKINSON'S DISEASE
     Dosage: 3 TAB/DAY
     Route: 048
     Dates: end: 20060922
  2. BIPERIDEN HYDROCHLORIDE TAB [Concomitant]
     Indication: PARKINSON'S DISEASE

REACTIONS (3)
  - DYSPHAGIA [None]
  - GASTROSTOMY [None]
  - WEIGHT DECREASED [None]
